FAERS Safety Report 9469798 (Version 1)
Quarter: 2013Q3

REPORT INFORMATION
  Report Type: Report from Study
  Country: CA (occurrence: CA)
  Receive Date: 20130822
  Receipt Date: 20130822
  Transmission Date: 20140515
  Serious: Yes (Hospitalization)
  Sender: FDA-Public Use
  Company Number: CA-JNJFOC-20130808769

PATIENT
  Age: 41 Year
  Sex: Male
  Weight: 96 kg

DRUGS (4)
  1. REMICADE [Suspect]
     Indication: CROHN^S DISEASE
     Route: 042
     Dates: start: 201012
  2. AZATHIOPRINE [Concomitant]
     Route: 048
  3. CITALOPRAM [Concomitant]
     Route: 048
  4. BUPROPION SR [Concomitant]
     Route: 048

REACTIONS (1)
  - Basal cell carcinoma [Recovered/Resolved]
